FAERS Safety Report 10178362 (Version 1)
Quarter: 2014Q2

REPORT INFORMATION
  Report Type: Spontaneous
  Country: US (occurrence: None)
  Receive Date: 20140516
  Receipt Date: 20140516
  Transmission Date: 20141212
  Serious: Yes (Disabling)
  Sender: FDA-Public Use
  Company Number: None

PATIENT
  Age: 4 Year
  Sex: Male
  Weight: 18.14 kg

DRUGS (1)
  1. MONTELUKAST SODIUM [Suspect]
     Indication: MULTIPLE ALLERGIES
     Route: 048
     Dates: start: 20140228, end: 20140514

REACTIONS (11)
  - Personality change [None]
  - Emotional disorder [None]
  - Negativism [None]
  - Aggression [None]
  - Hostility [None]
  - Aggression [None]
  - Mood swings [None]
  - Crying [None]
  - Nightmare [None]
  - Restlessness [None]
  - Pain in extremity [None]
